FAERS Safety Report 19950644 (Version 1)
Quarter: 2021Q4

REPORT INFORMATION
  Report Type: Report from Study
  Country: None (occurrence: US)
  Receive Date: 20211014
  Receipt Date: 20211014
  Transmission Date: 20220304
  Serious: Yes (Other)
  Sender: FDA-Public Use
  Company Number: US-ABBVIE-21K-163-4113742-00

PATIENT
  Sex: Female

DRUGS (1)
  1. HUMIRA [Suspect]
     Active Substance: ADALIMUMAB
     Indication: Crohn^s disease
     Dosage: CITRATE FREE
     Route: 058

REACTIONS (5)
  - Developmental delay [Unknown]
  - Diarrhoea [Not Recovered/Not Resolved]
  - Dermatitis diaper [Unknown]
  - Therapeutic product effect incomplete [Unknown]
  - Inflammation [Not Recovered/Not Resolved]
